FAERS Safety Report 13899464 (Version 1)
Quarter: 2017Q3

REPORT INFORMATION
  Report Type: Spontaneous
  Country: US (occurrence: US)
  Receive Date: 20170823
  Receipt Date: 20170823
  Transmission Date: 20171127
  Serious: No
  Sender: FDA-Public Use
  Company Number: US-JAZZ-2017-US-008269

PATIENT
  Sex: Female

DRUGS (34)
  1. XYREM [Suspect]
     Active Substance: SODIUM OXYBATE
     Dosage: DOSE ADJUSTMENT
     Route: 048
     Dates: start: 2009, end: 2011
  2. ALPHA                              /00169801/ [Concomitant]
  3. IODINE. [Concomitant]
     Active Substance: IODINE
  4. ZEOLITE [Concomitant]
  5. VITAMIN C [Concomitant]
     Active Substance: ASCORBIC ACID
  6. NAMENDA [Concomitant]
     Active Substance: MEMANTINE HYDROCHLORIDE
  7. KLONOPIN [Concomitant]
     Active Substance: CLONAZEPAM
  8. REMERON [Concomitant]
     Active Substance: MIRTAZAPINE
  9. XYREM [Suspect]
     Active Substance: SODIUM OXYBATE
     Dosage: 4.5 G, BID
     Route: 048
     Dates: start: 201104
  10. ORTHO DIGESTZYME [Concomitant]
  11. VIIBRYD [Concomitant]
     Active Substance: VILAZODONE HYDROCHLORIDE
  12. VITAMIN D                          /00107901/ [Concomitant]
     Active Substance: ERGOCALCIFEROL
  13. WELLBUTRIN [Concomitant]
     Active Substance: BUPROPION HYDROCHLORIDE
  14. PHENERGAN [Concomitant]
     Active Substance: PROMETHAZINE HYDROCHLORIDE
  15. ZYPREXA ZYDIS [Concomitant]
     Active Substance: OLANZAPINE
  16. DEPLIN [Concomitant]
     Active Substance: LEVOMEFOLATE CALCIUM
  17. IRON PICOLINATE [Concomitant]
  18. VITAMIN B COMPLEX [Concomitant]
     Active Substance: CYANOCOBALAMIN\DEXPANTHENOL\NIACINAMIDE\PYRIDOXINE HYDROCHLORIDE\RIBOFLAVIN 5^-PHOSPHATE SODIUM\THIAMINE HYDROCHLORIDE\VITAMIN B COMPLEX
  19. LEXAPRO [Concomitant]
     Active Substance: ESCITALOPRAM OXALATE
  20. PRILOSEC [Concomitant]
     Active Substance: OMEPRAZOLE MAGNESIUM
  21. FISH OIL [Concomitant]
     Active Substance: FISH OIL
  22. MANGANESE [Concomitant]
     Active Substance: MANGANESE\MANGANESE CHLORIDE
  23. CALCIUM + VITAMIN D                /00944201/ [Concomitant]
     Active Substance: CALCIUM CARBONATE\CHOLECALCIFEROL
  24. UBIQUINOL [Concomitant]
     Active Substance: UBIQUINOL
  25. VITAMIN E                          /00110501/ [Concomitant]
     Active Substance: TOCOPHEROL
  26. MOLYBDENUM [Concomitant]
     Active Substance: MOLYBDENUM
  27. CYMBALTA [Concomitant]
     Active Substance: DULOXETINE HYDROCHLORIDE
  28. XANAX [Concomitant]
     Active Substance: ALPRAZOLAM
  29. ALPHA LIPOIC ACID [Concomitant]
     Active Substance: .ALPHA.-LIPOIC ACID
  30. XYREM [Suspect]
     Active Substance: SODIUM OXYBATE
     Indication: NARCOLEPSY
     Dosage: 2.25 G, BID
     Route: 048
     Dates: start: 200906, end: 2009
  31. GLUTAMINE [Concomitant]
     Active Substance: GLUTAMINE
  32. DIVALPROEX SODIUM. [Concomitant]
     Active Substance: DIVALPROEX SODIUM
  33. MAGNESIUM CHLORIDE. [Concomitant]
     Active Substance: MAGNESIUM CHLORIDE
  34. CHEMET [Concomitant]
     Active Substance: SUCCIMER

REACTIONS (1)
  - Poor quality sleep [Not Recovered/Not Resolved]
